FAERS Safety Report 6712163-3 (Version None)
Quarter: 2010Q2

REPORT INFORMATION
  Report Type: 
  Country: None (occurrence: None)
  Receive Date: 20100505
  Receipt Date: 20100428
  Transmission Date: 20101027
  Serious: Yes (Death)
  Sender: FDA-Public Use
  Company Number: CA-ROCHE-700333

PATIENT
  Sex: Female

DRUGS (13)
  1. BEVACIZUMAB [Suspect]
     Indication: BREAST CANCER
     Route: 042
     Dates: start: 20090929
  2. DEXAMETHASONE [Concomitant]
     Dates: end: 20100418
  3. DOMPERIDONE [Concomitant]
     Dates: end: 20100418
  4. ONDANSETRON [Concomitant]
     Dates: end: 20100418
  5. TRIMETHOPRIM [Concomitant]
     Indication: PROPHYLAXIS URINARY TRACT INFECTION
     Dates: end: 20100418
  6. DILAUDID [Concomitant]
     Dates: end: 20100418
  7. LORAZEPAM [Concomitant]
     Dates: end: 20100418
  8. PAMIDRONATE DISODIUM [Concomitant]
     Dosage: ONCE MONTHLY
     Route: 042
     Dates: end: 20100418
  9. ELTROXIN [Concomitant]
     Dates: end: 20100418
  10. CALCIUM [Concomitant]
     Dates: end: 20100418
  11. VITAMINE D [Concomitant]
     Dosage: DRUG REPORTED AS VITAMIN D
     Dates: end: 20100418
  12. SENOKOT [Concomitant]
     Dates: end: 20100418
  13. LOSEC I.V. [Concomitant]
     Dates: end: 20100418

REACTIONS (1)
  - DEATH [None]
